FAERS Safety Report 10498594 (Version 1)
Quarter: 2014Q4

REPORT INFORMATION
  Report Type: Spontaneous
  Country: US (occurrence: US)
  Receive Date: 20141006
  Receipt Date: 20141006
  Transmission Date: 20150528
  Serious: No
  Sender: FDA-Public Use
  Company Number: US-009507513-1409USA000921

PATIENT
  Age: 53 Year
  Sex: Female

DRUGS (1)
  1. LOTRIMIN ULTRA [Suspect]
     Active Substance: BUTENAFINE HYDROCHLORIDE
     Indication: VAGINAL DISORDER
     Dosage: UNK, PRN
     Route: 061
     Dates: start: 20140826

REACTIONS (3)
  - Off label use [Unknown]
  - Pharyngeal oedema [Unknown]
  - Rash [Unknown]

NARRATIVE: CASE EVENT DATE: 20140826
